FAERS Safety Report 4648162-5 (Version None)
Quarter: 2005Q2

REPORT INFORMATION
  Report Type: 
  Country: None (occurrence: None)
  Receive Date: 20050331
  Receipt Date: 20050204
  Transmission Date: 20051028
  Serious: No
  Sender: FDA-Public Use
  Company Number: 05P-163-0289587-00

PATIENT
  Age: 78 Year
  Sex: Female
  Weight: 68.0396 kg

DRUGS (11)
  1. HUMIRA [Suspect]
     Indication: RHEUMATOID ARTHRITIS
     Dosage: 40 MG, SUBCUTANEOUS
     Route: 058
     Dates: start: 20041022
  2. LEVOTHYROXINE SODIUM [Concomitant]
  3. MULTI-VITAMINS [Concomitant]
  4. FOLIC ACID [Concomitant]
  5. CLARINEX [Concomitant]
  6. FISH OIL [Concomitant]
  7. CALCIUM CITRATE [Concomitant]
  8. AMLODIPINE BESYLATE [Concomitant]
  9. OPTIVAR [Concomitant]
  10. METHOTREXATE [Concomitant]
  11. ALENDRONATE SODIUM [Concomitant]

REACTIONS (1)
  - NASOPHARYNGITIS [None]
